FAERS Safety Report 25611155 (Version 2)
Quarter: 2025Q3

REPORT INFORMATION
  Report Type: Spontaneous
  Country: US (occurrence: US)
  Receive Date: 20250728
  Receipt Date: 20250817
  Transmission Date: 20251020
  Serious: Yes (Life-Threatening, Hospitalization, Other)
  Sender: AUROBINDO
  Company Number: US-MLMSERVICE-20250710-PI575049-00034-1

PATIENT
  Age: 76 Year
  Sex: Female

DRUGS (2)
  1. AMIODARONE HYDROCHLORIDE [Suspect]
     Active Substance: AMIODARONE HYDROCHLORIDE
     Indication: Nodal arrhythmia
     Route: 048
  2. AMIODARONE HYDROCHLORIDE [Suspect]
     Active Substance: AMIODARONE HYDROCHLORIDE
     Indication: Atrial fibrillation
     Route: 042

REACTIONS (7)
  - Acute hepatic failure [Recovered/Resolved]
  - Shock [Unknown]
  - Vascular access site haemorrhage [Unknown]
  - Respiratory distress [Unknown]
  - Hyperkalaemia [Unknown]
  - Hypotension [Unknown]
  - Drug ineffective [Unknown]
